FAERS Safety Report 25083466 (Version 2)
Quarter: 2025Q1

REPORT INFORMATION
  Report Type: Spontaneous
  Country: US (occurrence: US)
  Receive Date: 20250317
  Receipt Date: 20250320
  Transmission Date: 20250408
  Serious: No
  Sender: PFIZER
  Company Number: US-PFIZER INC-202500010214

PATIENT
  Age: 8 Year
  Sex: Female

DRUGS (1)
  1. SOMATROPIN [Suspect]
     Active Substance: SOMATROPIN
     Dates: start: 202412

REACTIONS (2)
  - Device chemical property issue [Unknown]
  - Product reconstitution quality issue [Unknown]
